FAERS Safety Report 4474974-7 (Version None)
Quarter: 2004Q3

REPORT INFORMATION
  Report Type: 
  Country: None (occurrence: None)
  Receive Date: 20040923
  Receipt Date: 20040628
  Transmission Date: 20050211
  Serious: No
  Sender: FDA-Public Use
  Company Number: USA040671283

PATIENT
  Age: 51 Year
  Sex: Female
  Weight: 66 kg

DRUGS (5)
  1. FORTEO [Suspect]
     Indication: FEMUR FRACTURE
     Dosage: 20 UG/1 DAY
     Dates: start: 20040610
  2. FORTEO [Suspect]
     Indication: IMPAIRED HEALING
     Dosage: 20 UG/1 DAY
     Dates: start: 20040610
  3. CALCIUM CITRATE WITH VITAMIN D [Concomitant]
  4. PREMARIN [Concomitant]
  5. BEXTRA [Concomitant]

REACTIONS (7)
  - ARTHRALGIA [None]
  - ASTHENIA [None]
  - DISCOMFORT [None]
  - KIDNEY INFECTION [None]
  - MUSCLE TIGHTNESS [None]
  - NAUSEA [None]
  - PAIN [None]
